FAERS Safety Report 13350123 (Version 1)
Quarter: 2017Q1

REPORT INFORMATION
  Report Type: Spontaneous
  Country: US (occurrence: US)
  Receive Date: 20170317
  Receipt Date: 20170317
  Transmission Date: 20170429
  Serious: No
  Sender: FDA-Public Use
  Company Number: None

PATIENT
  Age: 66 Year
  Sex: Male

DRUGS (1)
  1. REVLIMID [Suspect]
     Active Substance: LENALIDOMIDE
     Indication: MYELOFIBROSIS
     Route: 048
     Dates: start: 20170126

REACTIONS (4)
  - Dyspnoea [None]
  - Fluid retention [None]
  - Generalised oedema [None]
  - Peripheral swelling [None]

NARRATIVE: CASE EVENT DATE: 20170201
